FAERS Safety Report 7409812-3 (Version None)
Quarter: 2011Q2

REPORT INFORMATION
  Report Type: 
  Country: None (occurrence: None)
  Receive Date: 20110412
  Receipt Date: 20110406
  Transmission Date: 20111010
  Serious: Yes (Death, Hospitalization)
  Sender: FDA-Public Use
  Company Number: US-TEVA-271426USA

PATIENT
  Sex: Male
  Weight: 69.462 kg

DRUGS (16)
  1. CISPLATIN [Suspect]
     Indication: HEAD AND NECK CANCER
     Route: 042
     Dates: start: 20110301, end: 20110301
  2. INVESTIGATIONAL DRUG [Suspect]
     Indication: HEAD AND NECK CANCER
     Route: 042
     Dates: start: 20110301, end: 20110301
  3. FOLIC ACID [Concomitant]
     Dates: start: 20080527
  4. WARFARIN SODIUM [Concomitant]
     Dates: start: 20100624
  5. DEXAMETHASONE [Concomitant]
     Dates: start: 20110301
  6. PREDNISONE [Concomitant]
     Dates: start: 20090508
  7. RANITIDINE HYDROCHLORIDE [Concomitant]
     Dates: start: 20110301
  8. ESCITALOPRAM OXALATE [Concomitant]
     Dates: start: 20090318
  9. DIPHENHYDRAMINE HYDROCHLORIDE [Concomitant]
     Dates: start: 20110301
  10. PROCHLORPERAZINE EDISYLATE [Concomitant]
     Dates: start: 20110301
  11. SANCUSO [Concomitant]
     Route: 062
     Dates: start: 20110301
  12. ONDANSETRON [Concomitant]
     Dates: start: 20110301
  13. FLUOROURACIL [Suspect]
     Indication: HEAD AND NECK CANCER
     Route: 042
     Dates: start: 20110301, end: 20110304
  14. LEFLUNOMIDE [Concomitant]
     Dates: start: 20090508
  15. PALONOSETRON HYDROCHLORIDE [Concomitant]
     Dates: start: 20110301
  16. HYDROMORPHONE HCL [Concomitant]
     Dates: start: 20110225

REACTIONS (3)
  - HYPOXIA [None]
  - RESPIRATORY DISTRESS [None]
  - DISEASE PROGRESSION [None]
